FAERS Safety Report 25294905 (Version 3)
Quarter: 2025Q2

REPORT INFORMATION
  Report Type: Spontaneous
  Country: US (occurrence: US)
  Receive Date: 20250511
  Receipt Date: 20250630
  Transmission Date: 20250717
  Serious: No
  Sender: SANOFI AVENTIS
  Company Number: US-SA-2025SA131394

PATIENT
  Age: 47 Year
  Sex: Male
  Weight: 100 kg

DRUGS (4)
  1. DUPIXENT [Suspect]
     Active Substance: DUPILUMAB
     Indication: Nasal polyps
     Dosage: 300 MG, QOW
     Route: 058
     Dates: start: 202501
  2. ALBUTEROL SULFATE [Concomitant]
     Active Substance: ALBUTEROL SULFATE
  3. FLUTICASONE PROPIONATE [Concomitant]
     Active Substance: FLUTICASONE PROPIONATE
  4. VITAMINS NOS [Concomitant]
     Active Substance: VITAMINS
     Dosage: UNK, QD

REACTIONS (7)
  - Gingival pain [Unknown]
  - Toothache [Unknown]
  - Accidental exposure to product [Unknown]
  - Exposure via skin contact [Unknown]
  - Post procedural complication [Unknown]
  - Gingival bleeding [Unknown]
  - Endodontic procedure [Unknown]

NARRATIVE: CASE EVENT DATE: 20250101
